FAERS Safety Report 12641645 (Version 4)
Quarter: 2016Q4

REPORT INFORMATION
  Report Type: Report from Study
  Country: AU (occurrence: AU)
  Receive Date: 20160810
  Receipt Date: 20161010
  Transmission Date: 20170207
  Serious: Yes (Hospitalization, Other)
  Sender: FDA-Public Use
  Company Number: PHHY2016AU100526

PATIENT
  Sex: Male

DRUGS (5)
  1. VALPROATE SODIUM. [Suspect]
     Active Substance: VALPROATE SODIUM
     Indication: PRODUCT USED FOR UNKNOWN INDICATION
     Dosage: 1500 MG (500 MG IN THE MORNING AND 1000 MG AT NIGHT), UNK
     Route: 065
     Dates: end: 20160816
  2. ALLOPURINOL. [Suspect]
     Active Substance: ALLOPURINOL
     Indication: PRODUCT USED FOR UNKNOWN INDICATION
     Route: 065
  3. CLOZARIL [Suspect]
     Active Substance: CLOZAPINE
     Indication: SCHIZOPHRENIA
     Dosage: 600 MG, QD
     Route: 048
     Dates: start: 20091003, end: 20160713
  4. CLOZARIL [Suspect]
     Active Substance: CLOZAPINE
     Dosage: UNK
     Route: 048
     Dates: start: 20160720, end: 20160730
  5. OLANZAPINE. [Suspect]
     Active Substance: OLANZAPINE
     Indication: PRODUCT USED FOR UNKNOWN INDICATION
     Route: 065

REACTIONS (11)
  - Sepsis [Recovered/Resolved]
  - Extrapyramidal disorder [Unknown]
  - Agranulocytosis [Unknown]
  - Empyema [Unknown]
  - Lower respiratory tract infection [Unknown]
  - Cholecystitis [Unknown]
  - Serum ferritin increased [Unknown]
  - Dystonia [Unknown]
  - Liver abscess [Unknown]
  - Thrombocytopenia [Unknown]
  - Seizure [Unknown]
